FAERS Safety Report 6078652-2 (Version None)
Quarter: 2009Q1

REPORT INFORMATION
  Report Type: 
  Country: None (occurrence: None)
  Receive Date: 20090216
  Receipt Date: 20090210
  Transmission Date: 20090719
  Serious: Yes (Death, Hospitalization)
  Sender: FDA-Public Use
  Company Number: PHHY2009BR04900

PATIENT
  Age: 71 Year
  Sex: Male

DRUGS (2)
  1. FORASEQ [Suspect]
     Indication: CHRONIC OBSTRUCTIVE PULMONARY DISEASE
     Dosage: 12/400 UG, BID
  2. VITAMIN B COMPLEX CAP [Concomitant]

REACTIONS (1)
  - RENAL FAILURE [None]
